FAERS Safety Report 8523935-7 (Version None)
Quarter: 2012Q3

REPORT INFORMATION
  Report Type: 
  Country: None (occurrence: None)
  Receive Date: 20120720
  Receipt Date: 20120710
  Transmission Date: 20120928
  Serious: Yes (Life-Threatening, Hospitalization, Other)
  Sender: FDA-Public Use
  Company Number: GB-TEVA-347463ISR

PATIENT
  Age: 75 Year
  Sex: Female
  Weight: 60 kg

DRUGS (3)
  1. DONEPEZIL HCL [Concomitant]
  2. TRIMETHOPRIM [Suspect]
     Indication: URINARY TRACT INFECTION
     Dosage: 200MG PO BD
     Route: 048
     Dates: start: 20120626, end: 20120630
  3. LOPERAMIDE [Concomitant]

REACTIONS (3)
  - COMA SCALE ABNORMAL [None]
  - HYPONATRAEMIA [None]
  - CONVULSION [None]
